FAERS Safety Report 11256316 (Version 2)
Quarter: 2015Q3

REPORT INFORMATION
  Report Type: Report from Study
  Country: US (occurrence: US)
  Receive Date: 20150709
  Receipt Date: 20150721
  Transmission Date: 20151125
  Serious: Yes (Hospitalization)
  Sender: FDA-Public Use
  Company Number: US-EISAI MEDICAL RESEARCH-EC-2015-008204

PATIENT
  Age: 71 Year
  Sex: Male
  Weight: 114.2 kg

DRUGS (1)
  1. LENVIMA [Suspect]
     Active Substance: LENVATINIB
     Indication: THYROID CANCER
     Route: 048
     Dates: start: 201506, end: 20150630

REACTIONS (3)
  - Pyrexia [Unknown]
  - Infection [Unknown]
  - Diarrhoea [Unknown]

NARRATIVE: CASE EVENT DATE: 201506
